FAERS Safety Report 8591684-5 (Version None)
Quarter: 2012Q3

REPORT INFORMATION
  Report Type: 
  Country: None (occurrence: None)
  Receive Date: 20120814
  Receipt Date: 20120803
  Transmission Date: 20120928
  Serious: Yes (Other)
  Sender: FDA-Public Use
  Company Number: SE-NOVOPROD-357387

PATIENT
  Age: 65 Year
  Sex: Female

DRUGS (1)
  1. HUMAN INSULIN [Suspect]
     Indication: DIABETES MELLITUS
     Dosage: UNKNOWN
     Route: 065
     Dates: end: 20110316

REACTIONS (3)
  - VASCULITIS [None]
  - NEPHRITIS [None]
  - DYSPNOEA [None]
